FAERS Safety Report 15491569 (Version 1)
Quarter: 2018Q4

REPORT INFORMATION
  Report Type: Spontaneous
  Country: GB (occurrence: GB)
  Receive Date: 20181012
  Receipt Date: 20181012
  Transmission Date: 20190205
  Serious: Yes (Other)
  Sender: FDA-Public Use
  Company Number: GB-TEVA-2018-GB-963383

PATIENT
  Age: 51 Year
  Sex: Female

DRUGS (1)
  1. CLOMIPRAMINE [Suspect]
     Active Substance: CLOMIPRAMINE
     Indication: ANXIETY
     Route: 048
     Dates: start: 2003, end: 2017

REACTIONS (4)
  - Malaise [Unknown]
  - Angle closure glaucoma [Recovered/Resolved]
  - Blindness unilateral [Unknown]
  - Eye pain [Unknown]

NARRATIVE: CASE EVENT DATE: 20110912
